FAERS Safety Report 8887997 (Version 1)
Quarter: 2012Q4

REPORT INFORMATION
  Report Type: 
  Country: US (occurrence: US)
  Receive Date: 20121106
  Receipt Date: 20121106
  Transmission Date: 20130627
  Serious: Yes (Hospitalization)
  Sender: FDA-Public Use
  Company Number: US-BAYER-2012-114027

PATIENT
  Age: 79 Year
  Sex: Male

DRUGS (2)
  1. NEXAVAR [Suspect]
     Indication: HEPATOCELLULAR CARCINOMA NON-RESECTABLE
     Dosage: 400 mg, UNK
     Route: 048
     Dates: start: 201204, end: 201205
  2. NEXAVAR [Suspect]
     Indication: HEPATOCELLULAR CARCINOMA NON-RESECTABLE
     Dosage: 1 tablet
     Dates: start: 201206

REACTIONS (6)
  - Dehydration [None]
  - Nausea [None]
  - Dizziness [None]
  - Diarrhoea [None]
  - Constipation [None]
  - Vomiting [None]
